FAERS Safety Report 6436861-4 (Version None)
Quarter: 2009Q4

REPORT INFORMATION
  Report Type: 
  Country: None (occurrence: None)
  Receive Date: 20091111
  Receipt Date: 20090930
  Transmission Date: 20100525
  Serious: No
  Sender: FDA-Public Use
  Company Number: US-ALLERGAN-0913610US

PATIENT
  Sex: Male

DRUGS (5)
  1. SANCTURA XR [Suspect]
     Indication: HYPERTONIC BLADDER
     Dosage: UNK
     Route: 048
     Dates: start: 20090929
  2. AMBIEN [Concomitant]
  3. FUROSEMIDE [Concomitant]
  4. FOSINOPRIL SODIUM [Concomitant]
  5. HYDROCODONE [Concomitant]
     Dosage: 500 MG, UNK

REACTIONS (1)
  - NERVOUSNESS [None]
